FAERS Safety Report 18437046 (Version 3)
Quarter: 2020Q4

REPORT INFORMATION
  Report Type: Spontaneous
  Country: US (occurrence: US)
  Receive Date: 20201028
  Receipt Date: 20201105
  Transmission Date: 20210114
  Serious: Yes (Other)
  Sender: FDA-Public Use
  Company Number: US-PFIZER INC-2020416190

PATIENT
  Sex: Male

DRUGS (3)
  1. ATORVASTATIN CALCIUM. [Suspect]
     Active Substance: ATORVASTATIN CALCIUM
     Dosage: 20 MG
  2. CRESTOR [Suspect]
     Active Substance: ROSUVASTATIN CALCIUM
     Dosage: UNK
  3. ATORVASTATIN CALCIUM. [Suspect]
     Active Substance: ATORVASTATIN CALCIUM
     Dosage: 40 MG

REACTIONS (11)
  - Rash pruritic [Unknown]
  - Drug hypersensitivity [Unknown]
  - Wrist fracture [Unknown]
  - Purpura [Unknown]
  - Loss of personal independence in daily activities [Unknown]
  - Lipids increased [Unknown]
  - Drug ineffective [Unknown]
  - Urticaria [Unknown]
  - Dermatitis acneiform [Unknown]
  - Blood cholesterol increased [Unknown]
  - Blood triglycerides increased [Unknown]
